FAERS Safety Report 4300723-9 (Version None)
Quarter: 2004Q1

REPORT INFORMATION
  Report Type: 
  Country: None (occurrence: None)
  Receive Date: 20040218
  Receipt Date: 20040206
  Transmission Date: 20041129
  Serious: Yes (Death, Hospitalization)
  Sender: FDA-Public Use
  Company Number: US-JNJFOC-20040201878

PATIENT
  Age: 66 Year
  Sex: Male

DRUGS (1)
  1. DITROPAN [Suspect]
     Indication: DRUG USE FOR UNKNOWN INDICATION
     Dosage: 5 MG, ORAL
     Route: 048

REACTIONS (3)
  - CARDIAC FAILURE [None]
  - COR PULMONALE [None]
  - UROSEPSIS [None]
